FAERS Safety Report 7065556-1 (Version None)
Quarter: 2010Q4

REPORT INFORMATION
  Report Type: 
  Country: None (occurrence: None)
  Receive Date: 20101027
  Receipt Date: 20101020
  Transmission Date: 20110411
  Serious: Yes (Other)
  Sender: FDA-Public Use
  Company Number: JP-BRISTOL-MYERS SQUIBB COMPANY-15269087

PATIENT
  Age: 30 Year
  Sex: Female
  Weight: 50 kg

DRUGS (8)
  1. ABILIFY [Suspect]
     Indication: SCHIZOPHRENIA
     Dosage: 6MG 18JUN-09JUL10(22D),12MG 10JUL10-6AUG10(28D),18MG 07AUG10-24AUG10(18D),3MG 25AUG10-16SEP10(23D)
     Route: 048
     Dates: start: 20100618, end: 20100916
  2. ABILIFY [Suspect]
     Indication: HALLUCINATION
     Dosage: 6MG 18JUN-09JUL10(22D),12MG 10JUL10-6AUG10(28D),18MG 07AUG10-24AUG10(18D),3MG 25AUG10-16SEP10(23D)
     Route: 048
     Dates: start: 20100618, end: 20100916
  3. ABILIFY [Suspect]
     Indication: DELUSION
     Dosage: 6MG 18JUN-09JUL10(22D),12MG 10JUL10-6AUG10(28D),18MG 07AUG10-24AUG10(18D),3MG 25AUG10-16SEP10(23D)
     Route: 048
     Dates: start: 20100618, end: 20100916
  4. SERENACE [Concomitant]
     Dosage: TABS
     Dates: end: 20100825
  5. PHENOBARBITAL TAB [Concomitant]
     Dates: end: 20100825
  6. ALEVIATIN [Concomitant]
     Dates: end: 20100825
  7. ROHYPNOL [Concomitant]
     Dates: end: 20100825
  8. BIPERIDEN HYDROCHLORIDE TAB [Concomitant]
     Dosage: TABS
     Dates: end: 20100825

REACTIONS (2)
  - ABORTION INDUCED [None]
  - PREGNANCY [None]
